FAERS Safety Report 13753371 (Version 8)
Quarter: 2017Q4

REPORT INFORMATION
  Report Type: Report from Study
  Country: US (occurrence: US)
  Receive Date: 20170713
  Receipt Date: 20171228
  Transmission Date: 20180320
  Serious: Yes (Hospitalization)
  Sender: FDA-Public Use
  Company Number: US-JNJFOC-20170313437

PATIENT
  Age: 87 Year
  Sex: Female

DRUGS (20)
  1. IMBRUVICA [Suspect]
     Active Substance: IBRUTINIB
     Indication: MANTLE CELL LYMPHOMA
     Route: 048
     Dates: start: 20170302, end: 201707
  2. ACETAMINOPHEN. [Concomitant]
     Active Substance: ACETAMINOPHEN
  3. ZOFRAN [Concomitant]
     Active Substance: ONDANSETRON HYDROCHLORIDE
  4. BENADRYL [Concomitant]
     Active Substance: DIPHENHYDRAMINE HYDROCHLORIDE
  5. HCTZ [Concomitant]
     Active Substance: HYDROCHLOROTHIAZIDE
  6. ELIQUIS [Concomitant]
     Active Substance: APIXABAN
  7. VITAMIN B [Concomitant]
     Active Substance: VITAMIN B
  8. IMBRUVICA [Suspect]
     Active Substance: IBRUTINIB
     Indication: MANTLE CELL LYMPHOMA
     Route: 048
     Dates: start: 20170302
  9. POTASSIUM [Concomitant]
     Active Substance: POTASSIUM
  10. PLAVIX [Concomitant]
     Active Substance: CLOPIDOGREL BISULFATE
  11. ZANTAC [Concomitant]
     Active Substance: RANITIDINE HYDROCHLORIDE
  12. IMBRUVICA [Suspect]
     Active Substance: IBRUTINIB
     Indication: MANTLE CELL LYMPHOMA
     Route: 048
     Dates: start: 20170303, end: 201707
  13. IMBRUVICA [Suspect]
     Active Substance: IBRUTINIB
     Indication: MANTLE CELL LYMPHOMA
     Route: 048
     Dates: start: 20170303
  14. HYDROCHLOROTH [Concomitant]
     Active Substance: HYDROCHLOROTHIAZIDE
  15. TYLENOL [Concomitant]
     Active Substance: ACETAMINOPHEN
  16. LEVOTHYROXIN [Concomitant]
     Active Substance: LEVOTHYROXINE
  17. CYANOCOBALAMIN. [Concomitant]
     Active Substance: CYANOCOBALAMIN
  18. MULTIVITAMINS [Concomitant]
     Active Substance: VITAMINS
  19. LASIX [Concomitant]
     Active Substance: FUROSEMIDE
  20. KEFLEX [Concomitant]
     Active Substance: CEPHALEXIN

REACTIONS (25)
  - Cellulitis [Unknown]
  - Pneumonia [Recovering/Resolving]
  - Malaise [Recovering/Resolving]
  - Haemoptysis [Recovering/Resolving]
  - Asthenia [Not Recovered/Not Resolved]
  - Muscular weakness [Not Recovered/Not Resolved]
  - Eating disorder [Unknown]
  - Hiccups [Unknown]
  - Eyelid margin crusting [Unknown]
  - Vomiting [Unknown]
  - Cystitis [Unknown]
  - Dehydration [Recovered/Resolved]
  - Thrombosis [Recovering/Resolving]
  - Exophthalmos [Unknown]
  - Lacrimation increased [Unknown]
  - Eye discharge [Unknown]
  - Product use issue [Unknown]
  - Ocular hyperaemia [Recovered/Resolved]
  - Fatigue [Not Recovered/Not Resolved]
  - Erythema [Unknown]
  - Eye swelling [Recovering/Resolving]
  - Dyspepsia [Unknown]
  - Off label use [Unknown]
  - Hyperphagia [Unknown]
  - Blister [Unknown]

NARRATIVE: CASE EVENT DATE: 2017
